FAERS Safety Report 7268051-X (Version None)
Quarter: 2010Q4

REPORT INFORMATION
  Report Type: 
  Country: None (occurrence: None)
  Receive Date: 20101206
  Receipt Date: 20100713
  Transmission Date: 20110411
  Serious: Yes (Other)
  Sender: FDA-Public Use
  Company Number: 2010SP038959

PATIENT
  Sex: Male

DRUGS (7)
  1. SAPHRIS [Suspect]
     Indication: BIPOLAR DISORDER
     Dosage: 5 MG; BID; SL, 5 MG; BID; SL
     Route: 060
     Dates: end: 20100603
  2. SAPHRIS [Suspect]
     Indication: BIPOLAR DISORDER
     Dosage: 5 MG; BID; SL, 5 MG; BID; SL
     Route: 060
     Dates: start: 20100421
  3. GLYBURIDE [Concomitant]
  4. METFORMIN HYDROCHLORIDE [Concomitant]
  5. NOVOLOG [Concomitant]
  6. LYRICA [Concomitant]
  7. CLONIDINE [Concomitant]

REACTIONS (1)
  - EXTRAPYRAMIDAL DISORDER [None]
